FAERS Safety Report 7531086-3 (Version None)
Quarter: 2011Q2

REPORT INFORMATION
  Report Type: 
  Country: None (occurrence: None)
  Receive Date: 20110608
  Receipt Date: 20110601
  Transmission Date: 20111010
  Serious: Yes (Death)
  Sender: FDA-Public Use
  Company Number: IT-GENZYME-CAMP-1001674

PATIENT

DRUGS (7)
  1. CAMPATH [Suspect]
     Dosage: 30 MG, ONCE
     Route: 058
  2. CAMPATH [Suspect]
     Indication: BONE MARROW FAILURE
     Dosage: 3 MG, ONCE
     Route: 058
  3. CAMPATH [Suspect]
     Dosage: 10 MG, ONCE
     Route: 058
  4. CAMPATH [Suspect]
     Dosage: 30 MG, ONCE
     Route: 058
  5. VALGANCICLOVIR [Concomitant]
     Indication: INFECTION PROPHYLAXIS
     Dosage: FOR 3 MONTHS
     Route: 065
  6. CYCLOSPORINE [Suspect]
     Indication: BONE MARROW FAILURE
     Dosage: 1 MG/KG, UNK
     Route: 048
  7. BACTRIM [Concomitant]
     Indication: INFECTION PROPHYLAXIS
     Dosage: UNK
     Route: 065

REACTIONS (1)
  - CONNECTIVE TISSUE DISORDER [None]
